FAERS Safety Report 9898026 (Version 2)
Quarter: 2014Q1

REPORT INFORMATION
  Report Type: Spontaneous
  Country: GR (occurrence: GR)
  Receive Date: 20140214
  Receipt Date: 20140218
  Transmission Date: 20141002
  Serious: Yes (Hospitalization)
  Sender: FDA-Public Use
  Company Number: GR-PFIZER INC-2014039674

PATIENT
  Age: 57 Year
  Sex: Male

DRUGS (5)
  1. METHYLPREDNISOLONE [Suspect]
     Indication: LUPUS NEPHRITIS
     Dosage: UNK
  2. METHYLPREDNISOLONE [Suspect]
     Indication: RENAL VASCULITIS
  3. METHYLPREDNISOLONE [Suspect]
     Indication: IMMUNOSUPPRESSION
  4. CYCLOPHOSPHAMIDE [Suspect]
     Indication: LUPUS NEPHRITIS
     Dosage: UNK
  5. CYCLOPHOSPHAMIDE [Suspect]
     Indication: RENAL VASCULITIS

REACTIONS (1)
  - Bronchopulmonary aspergillosis [Recovering/Resolving]
